FAERS Safety Report 16184518 (Version 4)
Quarter: 2020Q2

REPORT INFORMATION
  Report Type: Spontaneous
  Country: NZ (occurrence: NZ)
  Receive Date: 20190411
  Receipt Date: 20200511
  Transmission Date: 20200713
  Serious: Yes (Death, Other)
  Sender: FDA-Public Use
  Company Number: NZ-MYLANLABS-2019M1034732

PATIENT
  Age: 57 Year
  Sex: Male

DRUGS (6)
  1. PAROXETINE. [Concomitant]
     Active Substance: PAROXETINE
     Dosage: 30 MILLIGRAM, AM
     Dates: end: 201810
  2. LAXOL                              /00047901/ [Concomitant]
     Indication: CONSTIPATION
     Dosage: 2 DOSAGE FORM, BID
     Route: 048
     Dates: end: 201907
  3. OMEPRAZOLE. [Concomitant]
     Active Substance: OMEPRAZOLE
     Dosage: 20 MILLIGRAM, AM
     Route: 048
     Dates: end: 201907
  4. MOLAXOLE [Concomitant]
     Active Substance: POLYETHYLENE GLYCOL 3350\POTASSIUM CHLORIDE\SODIUM BICARBONATE\SODIUM CHLORIDE
     Indication: CONSTIPATION
     Dosage: 1-2 PRN DAILY
     Route: 048
     Dates: end: 201907
  5. CLOZARIL [Suspect]
     Active Substance: CLOZAPINE
     Indication: SCHIZOPHRENIA
     Dosage: 400 MILLIGRAM, PM
     Route: 048
     Dates: start: 20070315, end: 201907
  6. AMISULPRIDE [Concomitant]
     Active Substance: AMISULPRIDE
     Indication: SCHIZOPHRENIA
     Dosage: 200 MG, AM+300 MG PM
     Route: 048
     Dates: end: 201907

REACTIONS (7)
  - Neutrophil count increased [Recovered/Resolved]
  - Metastases to bone [Fatal]
  - Neutropenia [Recovered/Resolved]
  - Constipation [Unknown]
  - Lung adenocarcinoma [Fatal]
  - White blood cell count increased [Recovered/Resolved]
  - White blood cell count decreased [Not Recovered/Not Resolved]

NARRATIVE: CASE EVENT DATE: 201801
